FAERS Safety Report 17316289 (Version 1)
Quarter: 2020Q1

REPORT INFORMATION
  Report Type: Spontaneous
  Country: US (occurrence: US)
  Receive Date: 20200124
  Receipt Date: 20200124
  Transmission Date: 20200409
  Serious: No
  Sender: FDA-Public Use
  Company Number: US-009507513-2001USA007058

PATIENT
  Age: 69 Year
  Sex: Male

DRUGS (5)
  1. PROVENTIL [Suspect]
     Active Substance: ALBUTEROL
     Indication: INFLUENZA LIKE ILLNESS
     Dosage: 2 PUFFS EVERY 6 HOURS AS NEEDED
     Dates: start: 20200116
  2. PROVENTIL [Suspect]
     Active Substance: ALBUTEROL
     Indication: DYSPNOEA
  3. AMOXICILLIN. [Concomitant]
     Active Substance: AMOXICILLIN
  4. PROVENTIL [Suspect]
     Active Substance: ALBUTEROL
     Indication: NASOPHARYNGITIS
  5. PROVENTIL [Suspect]
     Active Substance: ALBUTEROL
     Indication: LOWER RESPIRATORY TRACT CONGESTION

REACTIONS (4)
  - Poor quality device used [Unknown]
  - Circumstance or information capable of leading to medication error [Unknown]
  - Product dose omission [Unknown]
  - Product quality issue [Unknown]

NARRATIVE: CASE EVENT DATE: 20200116
